FAERS Safety Report 4554478-3 (Version None)
Quarter: 2005Q1

REPORT INFORMATION
  Report Type: 
  Country: None (occurrence: None)
  Receive Date: 20050114
  Receipt Date: 20041108
  Transmission Date: 20050727
  Serious: Yes (Death)
  Sender: FDA-Public Use
  Company Number: PHFR2004GB04138

PATIENT
  Age: 29 Year
  Sex: Male

DRUGS (16)
  1. DICLOFENAC SODIUM [Suspect]
     Indication: DRUG WITHDRAWAL SYNDROME
     Dosage: 25 MG, TID, ORAL
     Route: 048
  2. OCTREOTIDE ACETATE [Suspect]
     Indication: ANTIDIARRHOEAL SUPPORTIVE CARE
     Dosage: 100 UG Q12H, SUBCUTANEOUS
     Route: 058
  3. HEMINEVRIN (CLOMETHIAZOLE EDISILATE) [Suspect]
     Indication: DRUG WITHDRAWAL SYNDROME
     Dosage: ORAL
     Route: 048
     Dates: start: 20010831
  4. OMEPRAZOL (NGX) (OMEPRAZOLE) [Suspect]
     Indication: DRUG WITHDRAWAL SYNDROME
     Dosage: 20 MG/DAY, ORAL
     Route: 048
  5. CLONIDINE (NGX) (CLONIDINE HYDROCHLORIDE) [Suspect]
     Indication: DRUG WITHDRAWAL SYNDROME
     Dosage: 0.1 MG, PRN, ORAL
     Route: 048
  6. DIAZEPAM [Suspect]
     Indication: DRUG WITHDRAWAL SYNDROME
     Dosage: 10 MG, PRN, ORAL
     Route: 048
  7. LORAZEPAM [Suspect]
     Indication: DRUG WITHDRAWAL SYNDROME
     Dosage: 2.5 MG, PRN, ORAL
     Route: 048
  8. TEMAZEPAM [Suspect]
     Indication: DRUG WITHDRAWAL SYNDROME
     Dosage: 20 MG, PRN, ORAL
     Route: 048
  9. ROHYPNOL (FLUNITRAZEPAM) [Suspect]
     Indication: DRUG WITHDRAWAL SYNDROME
     Dosage: 1 MG, PRN, ORAL
     Route: 048
  10. CHLORPROMAZINE [Suspect]
     Indication: DRUG WITHDRAWAL SYNDROME
     Dosage: 50 MG, PRN, ORAL
     Route: 048
  11. METOCLOPRAMIDE [Suspect]
     Indication: DRUG WITHDRAWAL SYNDROME
     Dosage: 10 MG Q8H, SUBCUTANEOUS
     Route: 058
  12. PROCHLORPERAZINE MALEATE [Suspect]
     Indication: DRUG WITHDRAWAL SYNDROME
     Dosage: ORAL
     Route: 048
  13. HYOSCINE HBR HYT [Suspect]
     Indication: DRUG WITHDRAWAL SYNDROME
     Dosage: 10 MG, PRN, ORAL
     Route: 048
  14. NALTREXONE HCL [Suspect]
     Indication: DRUG WITHDRAWAL SYNDROME
     Dosage: ORAL
     Route: 048
  15. ACUPAN [Suspect]
     Indication: DRUG WITHDRAWAL SYNDROME
     Dosage: ORAL
     Route: 048
  16. ZOFRAN [Suspect]
     Indication: DRUG WITHDRAWAL SYNDROME
     Dosage: 8 MG, PRN, ORAL
     Route: 048

REACTIONS (2)
  - ASPIRATION [None]
  - DRUG WITHDRAWAL SYNDROME [None]
